FAERS Safety Report 13283942 (Version 1)
Quarter: 2017Q1

REPORT INFORMATION
  Report Type: Spontaneous
  Country: FR (occurrence: FR)
  Receive Date: 20170301
  Receipt Date: 20170301
  Transmission Date: 20170428
  Serious: Yes (Hospitalization)
  Sender: FDA-Public Use
  Company Number: FR-PFIZER INC-2017080199

PATIENT
  Age: 74 Year
  Sex: Male

DRUGS (7)
  1. NEBIVOLOL. [Concomitant]
     Active Substance: NEBIVOLOL
     Dosage: 5 MG, 1X/DAY IN THE MORNING
  2. ODRIK [Concomitant]
     Active Substance: TRANDOLAPRIL
     Dosage: 4 MG, 1X/DAY IN THE MORNING
  3. JANUMET [Concomitant]
     Active Substance: METFORMIN HYDROCHLORIDE\SITAGLIPTIN PHOSPHATE
     Dosage: 1 DF, 2X/DAY IN THE MORNING AND ON THE EVENING
  4. PROCORALAN [Concomitant]
     Active Substance: IVABRADINE
     Dosage: 7.5 MG, 2X/DAY ONE DOSAGE FORM (DF) IN THE MORNING AND ON THE EVENING
  5. TAHOR [Suspect]
     Active Substance: ATORVASTATIN CALCIUM
     Indication: HYPERCHOLESTEROLAEMIA
     Dosage: 80 MG, 1X/DAY
     Route: 048
     Dates: end: 20170122
  6. KARDEGIC [Concomitant]
     Active Substance: ASPIRIN LYSINE
     Dosage: 75 MG, 1X/DAY ONE SACHET AT NOON
  7. GLIMEPIRIDE. [Concomitant]
     Active Substance: GLIMEPIRIDE
     Dosage: 4 MG, 1X/DAY IN THE MORNING

REACTIONS (6)
  - Aspartate aminotransferase increased [Recovered/Resolved]
  - Presyncope [Unknown]
  - Blood creatine phosphokinase increased [Recovered/Resolved]
  - Myalgia [Recovered/Resolved]
  - Hypoglycaemia [Unknown]
  - Fall [Unknown]

NARRATIVE: CASE EVENT DATE: 20170122
